FAERS Safety Report 15134568 (Version 1)
Quarter: 2018Q3

REPORT INFORMATION
  Report Type: Spontaneous
  Country: DE (occurrence: DE)
  Receive Date: 20180712
  Receipt Date: 20180712
  Transmission Date: 20181010
  Serious: Yes (Hospitalization, Other)
  Sender: FDA-Public Use
  Company Number: DE-PFIZER INC-2018275325

PATIENT
  Age: 77 Year
  Sex: Male

DRUGS (25)
  1. PREDNISOLONE. [Concomitant]
     Active Substance: PREDNISOLONE
     Dosage: 5 MG, 1X/DAY
     Route: 048
     Dates: start: 20180421
  2. PANTOPRAZOL [Concomitant]
     Active Substance: PANTOPRAZOLE SODIUM
     Dosage: 20 MG, 1X/DAY
     Route: 048
     Dates: start: 20180421, end: 20180425
  3. LEVOFLOXACIN. [Concomitant]
     Active Substance: LEVOFLOXACIN
     Dosage: 500 MG, 1X/DAY
     Route: 048
     Dates: start: 20180328, end: 20180405
  4. FRAGMIN [Concomitant]
     Active Substance: DALTEPARIN SODIUM
     Dosage: 5000 IU, 1X/DAY
     Route: 058
     Dates: start: 20180327, end: 20180405
  5. BUSCOPAN [Concomitant]
     Active Substance: BUTYLSCOPOLAMINE BROMIDE
     Dosage: 30 MG, 1X/DAY
     Route: 048
     Dates: start: 20180403, end: 20180413
  6. SERTRALINE HCL [Suspect]
     Active Substance: SERTRALINE HYDROCHLORIDE
     Dosage: 50 MG, 1X/DAY
     Route: 048
     Dates: start: 201706, end: 20180420
  7. CODIOVAN [Concomitant]
     Active Substance: HYDROCHLOROTHIAZIDE\VALSARTAN
     Dosage: 160/12,5 MG, 1DF, 1X/DAY
     Route: 048
     Dates: start: 2013
  8. ALLOPURINOL. [Concomitant]
     Active Substance: ALLOPURINOL
     Dosage: 300 MG, 1X/DAY
     Route: 048
     Dates: start: 2013
  9. BIFITERAL [Concomitant]
     Active Substance: LACTULOSE
     Dosage: 7000 MG, 1X/DAY
     Route: 048
     Dates: start: 20180329, end: 20180413
  10. VALSARTAN. [Concomitant]
     Active Substance: VALSARTAN
     Dosage: 160 MG, 1X/DAY
     Dates: start: 20180413
  11. PREDNISOLONE. [Concomitant]
     Active Substance: PREDNISOLONE
     Dosage: TAKEN FOR YEARS 5?50 MG
     Route: 048
     Dates: end: 20180413
  12. PREDNISOLONE. [Concomitant]
     Active Substance: PREDNISOLONE
     Dosage: 10 ? 20MG
     Route: 048
     Dates: start: 20180414, end: 20180416
  13. PANTOPRAZOL [Concomitant]
     Active Substance: PANTOPRAZOLE SODIUM
     Dosage: 40 MG, 1X/DAY, TAKEN FOR YEARS
     Route: 048
     Dates: end: 20180412
  14. AMLODIPINE [Concomitant]
     Active Substance: AMLODIPINE BESYLATE
     Dosage: UNK
  15. MIFLONIDE [Concomitant]
     Active Substance: BUDESONIDE
     Dosage: 200 UG, 1X/DAY, TAKEN FOR YEARS
     Route: 048
  16. NOVALGIN (METAMIZOLE SODIUM) [Concomitant]
     Active Substance: METAMIZOLE SODIUM
     Dosage: 2000 MG, 1X/DAY
     Route: 048
     Dates: start: 20180413, end: 20180425
  17. ESPUMISAN [Concomitant]
     Active Substance: DIMETHICONE
     Dosage: 160 MG, 1X/DAY
     Route: 048
     Dates: start: 20180330, end: 20180412
  18. CALCIUM [Concomitant]
     Active Substance: CALCIUM
     Dosage: 500 MG, 1X/DAY
     Route: 048
     Dates: start: 20180404
  19. VIGANTOLETTEN [Concomitant]
     Active Substance: CHOLECALCIFEROL
     Dosage: 1 DF, 1X/DAY
     Dates: start: 20180404
  20. PANTOPRAZOL [Concomitant]
     Active Substance: PANTOPRAZOLE SODIUM
     Dosage: 40 MG, 1X/DAY
     Dates: start: 20180426
  21. FORMOTEROL [Concomitant]
     Active Substance: FORMOTEROL
     Dosage: 24 UG, 1X/DAY, TAKEN FOR YEARS
     Route: 048
  22. NOVALGIN (METAMIZOLE SODIUM) [Concomitant]
     Active Substance: METAMIZOLE SODIUM
     Dosage: 2250 MG, 1X/DAY
     Route: 048
     Dates: start: 20180329, end: 20180412
  23. SPIRIVA [Concomitant]
     Active Substance: TIOTROPIUM BROMIDE MONOHYDRATE
     Dosage: 18 UG, 1X/DAY, TAKEN FOR YEARS
     Route: 048
  24. ASPIRIN. [Suspect]
     Active Substance: ASPIRIN
     Dosage: 100 MG, 1X/DAY
     Route: 048
     Dates: start: 2013, end: 20180409
  25. ASPIRIN. [Suspect]
     Active Substance: ASPIRIN
     Dosage: 100 MG, 1X/DAY
     Route: 048
     Dates: start: 20180430

REACTIONS (11)
  - Haemorrhage [Recovered/Resolved]
  - Protein total decreased [Unknown]
  - White blood cell count decreased [Unknown]
  - C-reactive protein increased [Unknown]
  - Activated partial thromboplastin time shortened [Unknown]
  - Red blood cell count decreased [Unknown]
  - Anti factor IX antibody increased [Unknown]
  - Haemoglobin decreased [Unknown]
  - Von Willebrand^s factor activity increased [Unknown]
  - Haematocrit decreased [Unknown]
  - Anti factor VIII antibody increased [Unknown]

NARRATIVE: CASE EVENT DATE: 20180413
